FAERS Safety Report 13180639 (Version 1)
Quarter: 2017Q1

REPORT INFORMATION
  Report Type: Report from Study
  Country: IN (occurrence: IN)
  Receive Date: 20170202
  Receipt Date: 20170202
  Transmission Date: 20170428
  Serious: Yes (Other)
  Sender: FDA-Public Use
  Company Number: IN-JNJFOC-20170127333

PATIENT

DRUGS (2)
  1. TRAMADOL. [Suspect]
     Active Substance: TRAMADOL
     Indication: CHILLS
     Route: 042
  2. BUPIVACAINE. [Concomitant]
     Active Substance: BUPIVACAINE
     Indication: SPINAL ANAESTHESIA
     Dosage: AT L2-3 OR L3-4 INTERSPACE
     Route: 065

REACTIONS (4)
  - Disease recurrence [Recovered/Resolved]
  - Sedation [Unknown]
  - Nausea [Unknown]
  - Vomiting [Unknown]
